FAERS Safety Report 24361095 (Version 2)
Quarter: 2024Q4

REPORT INFORMATION
  Report Type: Spontaneous
  Country: US (occurrence: US)
  Receive Date: 20240925
  Receipt Date: 20241226
  Transmission Date: 20250114
  Serious: No
  Sender: NOVARTIS
  Company Number: US-002147023-NVSC2024US190560

PATIENT
  Sex: Female

DRUGS (2)
  1. MEKINIST [Suspect]
     Active Substance: TRAMETINIB DIMETHYL SULFOXIDE
     Indication: Colon cancer
     Dosage: 2 MG, QD
     Route: 048
     Dates: start: 202409, end: 20240924
  2. KEYTRUDA [Suspect]
     Active Substance: PEMBROLIZUMAB
     Indication: Product used for unknown indication
     Dosage: UNK
     Route: 065
     Dates: start: 202412

REACTIONS (6)
  - Constipation [Unknown]
  - Pigmentation disorder [Unknown]
  - Amnesia [Unknown]
  - Dyspnoea [Unknown]
  - Weight decreased [Unknown]
  - Dry skin [Unknown]
